FAERS Safety Report 14468132 (Version 1)
Quarter: 2018Q1

REPORT INFORMATION
  Report Type: Spontaneous
  Country: DE (occurrence: DE)
  Receive Date: 20180131
  Receipt Date: 20180131
  Transmission Date: 20180509
  Serious: Yes (Hospitalization)
  Sender: FDA-Public Use
  Company Number: DE-TEVA-2018-DE-849855

PATIENT
  Sex: Female

DRUGS (20)
  1. VINCRISTINE [Suspect]
     Active Substance: VINCRISTINE
     Indication: B-CELL LYMPHOMA
     Dosage: 2 MG, ONE TIME DOSE (1 TIME A DAY FOR 1 DAY)
     Route: 065
     Dates: start: 20170808, end: 20170808
  2. SITAGLIPTIN [Concomitant]
     Active Substance: SITAGLIPTIN
     Indication: BLOOD GLUCOSE ABNORMAL
     Dosage: 25 MILLIGRAM DAILY; 25 MG, QD
     Route: 048
  3. CYCLOPHOSPHAMIDE. [Suspect]
     Active Substance: CYCLOPHOSPHAMIDE
     Indication: B-CELL LYMPHOMA
     Dosage: 1350 MG, ONE TIME DOSE (1 TIME A DAY FOR 1 DAY)
     Route: 065
     Dates: start: 20170808, end: 20170808
  4. NALOXONE HYDROCHLORIDE W/TILIDINE HYDROCHLORI [Concomitant]
     Indication: PAIN
     Dosage: UNK UNK, BID (50/4 MG, 1-0-1)
     Route: 048
  5. SULFAMETHOXAZOLE AND TRIMETHOPRIM [Concomitant]
     Active Substance: SULFAMETHOXAZOLE\TRIMETHOPRIM
     Indication: ANTIBIOTIC THERAPY
     Dosage: 960 MG, 2 TIMES/WK
  6. FLUCONAZOLE. [Concomitant]
     Active Substance: FLUCONAZOLE
     Indication: ORAL CANDIDIASIS
     Dosage: 100 MILLIGRAM DAILY; 100 MG, QD
     Route: 048
     Dates: start: 20170821
  7. CHOLECALCIFEROL [Concomitant]
     Active Substance: CHOLECALCIFEROL
     Indication: VITAMIN D DEFICIENCY
     Dosage: 20000 MILLIGRAM DAILY; 20000 IU, QD
     Dates: start: 20170821
  8. ALLOPURINOL. [Concomitant]
     Active Substance: ALLOPURINOL
     Indication: BLOOD URIC ACID ABNORMAL
     Dosage: 100 MILLIGRAM DAILY; 100 MG, QD
  9. PREGABALIN. [Concomitant]
     Active Substance: PREGABALIN
     Indication: PAIN
     Dosage: 75 MILLIGRAM DAILY; 75 MG, QD
     Route: 048
  10. DOXORUBICINE [Suspect]
     Active Substance: DOXORUBICIN
     Indication: B-CELL LYMPHOMA
     Dosage: 90 MG, ONE TIME DOSE (1 TIME A DAY FOR 1 DAY)
     Route: 065
     Dates: start: 20170808, end: 20170808
  11. PRAMIPEXOL [Concomitant]
     Active Substance: PRAMIPEXOLE
     Indication: RESTLESS LEGS SYNDROME
     Dosage: 18 MILLIGRAM DAILY; 18 MG, QD
     Route: 048
  12. CANDESARTAN. [Concomitant]
     Active Substance: CANDESARTAN
     Indication: HYPERTENSION
     Dosage: 10 MILLIGRAM DAILY; 10 MG, QD
     Route: 048
     Dates: end: 20170821
  13. RITUXIMAB. [Suspect]
     Active Substance: RITUXIMAB
     Indication: B-CELL LYMPHOMA
     Dosage: 675 MG, ONE TIME DOSE (1 TIME A DAY FOR 1 DAY)
     Route: 065
     Dates: start: 20170807, end: 20170807
  14. SIMVASTATIN. [Concomitant]
     Active Substance: SIMVASTATIN
     Indication: HYPERCHOLESTEROLAEMIA
     Dosage: 20 MILLIGRAM DAILY; 20 MG, QD
     Route: 048
     Dates: end: 20170821
  15. PANTOPRAZOLE SODIUM. [Concomitant]
     Active Substance: PANTOPRAZOLE SODIUM
     Indication: PROPHYLAXIS AGAINST GASTROINTESTINAL ULCER
     Dosage: 40 MILLIGRAM DAILY; 40 MG, QD
     Route: 048
  16. PREDNISOLONE. [Suspect]
     Active Substance: PREDNISOLONE
     Indication: B-CELL LYMPHOMA
     Dosage: 100 MG, QD (1-0-0)
     Route: 048
     Dates: start: 20170801, end: 20170811
  17. PEGFILGRASTIM [Suspect]
     Active Substance: PEGFILGRASTIM
     Indication: B-CELL LYMPHOMA
     Dosage: 6 MG, ONE TIME DOSE (1 TIME A DAY FOR 1 DAY)
     Route: 058
     Dates: start: 20170811, end: 20170811
  18. CIPROFLOXACIN. [Concomitant]
     Active Substance: CIPROFLOXACIN
     Indication: INFECTION
     Dosage: 1000 MILLIGRAM DAILY; 500 MG, BID
     Dates: end: 20170821
  19. TORASEMIDE [Concomitant]
     Active Substance: TORSEMIDE
     Indication: OEDEMA
     Dosage: 10 MILLIGRAM DAILY; 10 MG, QD
     Route: 048
     Dates: end: 20170821
  20. ACICLOVIR [Concomitant]
     Active Substance: ACYCLOVIR
     Indication: PROPHYLAXIS
     Dosage: 600 MILLIGRAM DAILY; 200 MG, TID
     Route: 048
     Dates: end: 20170821

REACTIONS (3)
  - Blood creatinine increased [Recovered/Resolved]
  - Cystitis [Not Recovered/Not Resolved]
  - C-reactive protein increased [Not Recovered/Not Resolved]

NARRATIVE: CASE EVENT DATE: 20170825
